FAERS Safety Report 9337396 (Version 1)
Quarter: 2013Q2

REPORT INFORMATION
  Report Type: Spontaneous
  Country: CA (occurrence: CA)
  Receive Date: 20130607
  Receipt Date: 20130607
  Transmission Date: 20140414
  Serious: Yes (Other)
  Sender: FDA-Public Use
  Company Number: CA-ABBOTT-13P-028-1097763-00

PATIENT
  Sex: Female

DRUGS (1)
  1. HUMIRA [Suspect]
     Indication: CROHN^S DISEASE
     Dates: start: 2006, end: 2009

REACTIONS (6)
  - Small intestinal obstruction [Unknown]
  - Drug ineffective [Unknown]
  - Depression [Unknown]
  - Crohn^s disease [Unknown]
  - Crohn^s disease [Unknown]
  - Post procedural complication [Unknown]
